FAERS Safety Report 13253914 (Version 1)
Quarter: 2017Q1

REPORT INFORMATION
  Report Type: Spontaneous
  Country: GB (occurrence: GB)
  Receive Date: 20170220
  Receipt Date: 20170220
  Transmission Date: 20170428
  Serious: Yes (Hospitalization)
  Sender: FDA-Public Use
  Company Number: PHHY2017GB021555

PATIENT
  Age: 56 Year
  Sex: Female

DRUGS (3)
  1. ADOPORT [Suspect]
     Active Substance: TACROLIMUS
     Indication: PRODUCT USED FOR UNKNOWN INDICATION
     Dosage: 1 MG, UNK
     Route: 065
  2. AZATHIOPRINE SANDOZ [Suspect]
     Active Substance: AZATHIOPRINE
     Dosage: 25 MG, UNK
     Route: 065
  3. AZATHIOPRINE SANDOZ [Suspect]
     Active Substance: AZATHIOPRINE
     Indication: PRODUCT USED FOR UNKNOWN INDICATION
     Dosage: 50 MG, UNK
     Route: 065

REACTIONS (1)
  - Blood calcium abnormal [Unknown]

NARRATIVE: CASE EVENT DATE: 201612
